FAERS Safety Report 6264238-3 (Version None)
Quarter: 2009Q3

REPORT INFORMATION
  Report Type: 
  Country: None (occurrence: None)
  Receive Date: 20090710
  Receipt Date: 20090630
  Transmission Date: 20100115
  Serious: Yes (Death, Other)
  Sender: FDA-Public Use
  Company Number: US-JNJFOC-20090501533

PATIENT
  Sex: Male
  Weight: 81.19 kg

DRUGS (6)
  1. REMICADE [Suspect]
     Indication: ANKYLOSING SPONDYLITIS
     Dosage: APPROXIMATELY 37 INFUSIONS
     Route: 042
  2. DEXAMETHASONE [Concomitant]
  3. FOLIC ACID [Concomitant]
     Dosage: ^SIG: 9 EVERY SATURDAY^
     Route: 048
  4. METHOTREXATE [Concomitant]
     Dosage: ^SIG: 3 EVERY MONDAY^
  5. NABUMETONE [Concomitant]
  6. ZOCOR [Concomitant]

REACTIONS (5)
  - BRAIN NEOPLASM [None]
  - COCCIDIOIDOMYCOSIS [None]
  - DEATH [None]
  - MELANOMA RECURRENT [None]
  - THYROID MASS [None]
